FAERS Safety Report 25837545 (Version 1)
Quarter: 2025Q3

REPORT INFORMATION
  Report Type: Spontaneous
  Country: EU (occurrence: EU)
  Receive Date: 20250923
  Receipt Date: 20250923
  Transmission Date: 20251021
  Serious: Yes (Death)
  Sender: TEVA
  Company Number: None

PATIENT
  Age: 80 Year
  Sex: Female
  Weight: 85 kg

DRUGS (1)
  1. PACLITAXEL [Suspect]
     Active Substance: PACLITAXEL
     Indication: Squamous cell carcinoma
     Route: 042
     Dates: start: 20250825, end: 20250825

REACTIONS (3)
  - Shock [Fatal]
  - Acute hepatic failure [Fatal]
  - Cardiovascular insufficiency [Fatal]

NARRATIVE: CASE EVENT DATE: 20250825
